FAERS Safety Report 5337919-3 (Version None)
Quarter: 2007Q2

REPORT INFORMATION
  Report Type: 
  Country: None (occurrence: None)
  Receive Date: 20070327
  Receipt Date: 20061206
  Transmission Date: 20071010
  Serious: No
  Sender: FDA-Public Use
  Company Number: 232550

PATIENT
  Sex: Female

DRUGS (5)
  1. AVASTIN [Suspect]
     Indication: COLON CANCER
     Dosage: 350 MG, Q14D; INTRAVENOUS
     Route: 042
     Dates: start: 20060711
  2. ABRAXANE [Concomitant]
  3. OXALIPLATIN [Concomitant]
  4. FLUOROURACIL [Concomitant]
  5. LEUCOVORIN CALCIUM [Concomitant]

REACTIONS (1)
  - NEUROPATHY [None]
